FAERS Safety Report 10083455 (Version 1)
Quarter: 2014Q2

REPORT INFORMATION
  Report Type: Spontaneous
  Country: FR (occurrence: FR)
  Receive Date: 20140417
  Receipt Date: 20140417
  Transmission Date: 20141212
  Serious: Yes (Other)
  Sender: FDA-Public Use
  Company Number: FR-ELI_LILLY_AND_COMPANY-FR201404001587

PATIENT
  Sex: Female

DRUGS (2)
  1. ZYPREXA [Suspect]
     Indication: PRODUCT USED FOR UNKNOWN INDICATION
     Dosage: 2.5 MG, QD
     Route: 048
     Dates: start: 20130521, end: 20131118
  2. ZYPREXA [Suspect]
     Dosage: 5 MG, QD
     Route: 048
     Dates: start: 20131118, end: 20140118

REACTIONS (6)
  - Preterm premature rupture of membranes [Unknown]
  - Gestational diabetes [Unknown]
  - Tachyphrenia [Unknown]
  - Anxiety [Unknown]
  - Exposure during breast feeding [Unknown]
  - Exposure during pregnancy [Recovered/Resolved]
